FAERS Safety Report 7466818-6 (Version None)
Quarter: 2011Q2

REPORT INFORMATION
  Report Type: 
  Country: None (occurrence: None)
  Receive Date: 20110509
  Receipt Date: 20110505
  Transmission Date: 20111010
  Serious: Yes (Hospitalization)
  Sender: FDA-Public Use
  Company Number: US-MERCK-1104USA02667

PATIENT
  Age: 15 Year
  Sex: Female

DRUGS (1)
  1. ISENTRESS [Suspect]
     Indication: HIV INFECTION
     Route: 048
     Dates: start: 20091027

REACTIONS (1)
  - DIABETES MELLITUS [None]
